FAERS Safety Report 4785952-2 (Version None)
Quarter: 2005Q3

REPORT INFORMATION
  Report Type: 
  Country: None (occurrence: None)
  Receive Date: 20050930
  Receipt Date: 20050915
  Transmission Date: 20060218
  Serious: Yes (Hospitalization, Other)
  Sender: FDA-Public Use
  Company Number: GBR-2005-0001795

PATIENT
  Age: 47 Year
  Sex: Female

DRUGS (7)
  1. OXYCONTIN [Suspect]
     Indication: OSTEOARTHRITIS
     Dosage: 20 MG, DAILY, ORAL
     Route: 048
     Dates: start: 20050601, end: 20050709
  2. OXYNORM CAPSULES 10 MG (OXYCODONE HYDROCHLORIDE) IR CAPSULES [Suspect]
     Indication: OSTEOARTHRITIS
     Dosage: 10 MG, DAILY, ORAL
     Route: 048
     Dates: start: 20050601, end: 20050709
  3. CIPROFLOXACIN HCL [Suspect]
     Dates: start: 20050711, end: 20050712
  4. CIPROFLOXACIN [Suspect]
     Indication: INFECTION
     Dosage: 1 GRAM, DAILY, ORAL
     Route: 048
     Dates: start: 20050709, end: 20050709
  5. ACETAMINOPHEN [Suspect]
     Indication: PAIN
     Dosage: 4 GRAM, DAILY, ORAL
     Route: 048
     Dates: start: 20060601, end: 20050709
  6. AMITRIPTYLINE HCL [Suspect]
     Indication: PAIN
     Dosage: 25 MG, DAILY, ORAL
     Route: 048
     Dates: end: 20050709
  7. FORLAX (MACAROGOL) [Suspect]
     Indication: CONSTIPATION
     Dosage: 1 TO 3, DAILY, ORAL
     Route: 048
     Dates: start: 20050601, end: 20050709

REACTIONS (3)
  - CHOLESTEROSIS [None]
  - FOOD INTOLERANCE [None]
  - PANCREATITIS ACUTE [None]
